FAERS Safety Report 7741644-9 (Version None)
Quarter: 2011Q3

REPORT INFORMATION
  Report Type: 
  Country: None (occurrence: None)
  Receive Date: 20110911
  Receipt Date: 20110907
  Transmission Date: 20111222
  Serious: Yes (Hospitalization)
  Sender: FDA-Public Use
  Company Number: US-BRISTOL-MYERS SQUIBB COMPANY-15797632

PATIENT
  Age: 56 Year
  Sex: Male

DRUGS (3)
  1. THYMOGLOBULIN [Suspect]
     Indication: RENAL TRANSPLANT
     Route: 042
     Dates: start: 20071030, end: 20071102
  2. BELATACEPT [Suspect]
     Indication: RENAL TRANSPLANT
     Route: 042
     Dates: start: 20071030
  3. CELL CEPT [Suspect]
     Indication: RENAL TRANSPLANT
     Route: 048
     Dates: start: 20071030

REACTIONS (1)
  - CELLULITIS [None]
